FAERS Safety Report 6551098-6 (Version None)
Quarter: 2010Q1

REPORT INFORMATION
  Report Type: 
  Country: None (occurrence: None)
  Receive Date: 20100121
  Receipt Date: 20100107
  Transmission Date: 20100710
  Serious: Yes (Death)
  Sender: FDA-Public Use
  Company Number: 2010AL000105

PATIENT
  Age: 27 Year
  Sex: Female

DRUGS (4)
  1. OXYCODONE HYDROCHLORIDE [Suspect]
     Indication: MUSCULOSKELETAL PAIN
     Dosage: 5 MG;QID;PO
     Route: 048
  2. HYDROCODONE [Concomitant]
  3. CONTROLLED RELEASE MORPHINE [Concomitant]
  4. METHADONE [Concomitant]

REACTIONS (2)
  - OVERDOSE [None]
  - SYNCOPE [None]
